FAERS Safety Report 8880291 (Version 1)
Quarter: 2012Q4

REPORT INFORMATION
  Report Type: 
  Country: RO (occurrence: RO)
  Receive Date: 20121031
  Receipt Date: 20121031
  Transmission Date: 20130627
  Serious: Yes (Hospitalization)
  Sender: FDA-Public Use
  Company Number: RO-ASTRAZENECA-2012SE81206

PATIENT
  Sex: Male

DRUGS (1)
  1. SYMBICORT TURBUHALER [Suspect]
     Route: 055

REACTIONS (1)
  - Asthma [Unknown]
